FAERS Safety Report 5592882-5 (Version None)
Quarter: 2008Q1

REPORT INFORMATION
  Report Type: 
  Country: None (occurrence: None)
  Receive Date: 20080116
  Receipt Date: 20080110
  Transmission Date: 20080703
  Serious: Yes (Hospitalization)
  Sender: FDA-Public Use
  Company Number: NL-JNJFOC-20070606560

PATIENT
  Sex: Male
  Weight: 42.2 kg

DRUGS (9)
  1. INFLIXIMAB [Suspect]
     Route: 042
  2. INFLIXIMAB [Suspect]
     Route: 042
  3. INFLIXIMAB [Suspect]
     Route: 042
  4. INFLIXIMAB [Suspect]
     Indication: CROHN'S DISEASE
     Route: 042
  5. AZATHIAPRINE [Concomitant]
     Indication: CROHN'S DISEASE
  6. FRAXIPARINE [Concomitant]
     Indication: PROPHYLAXIS
     Dosage: DOSE 2850 IU
  7. FOLIC ACID [Concomitant]
  8. INSULATARD [Concomitant]
     Indication: DIABETES MELLITUS
  9. ADALIMUMAB [Concomitant]
     Indication: CROHN'S DISEASE

REACTIONS (1)
  - MALNUTRITION [None]
